FAERS Safety Report 24524882 (Version 2)
Quarter: 2024Q4

REPORT INFORMATION
  Report Type: Report from Study
  Country: US (occurrence: US)
  Receive Date: 20241019
  Receipt Date: 20241026
  Transmission Date: 20250115
  Serious: Yes (Other)
  Sender: ABBVIE
  Company Number: US-ABBVIE-5967695

PATIENT
  Age: 74 Year
  Sex: Female
  Weight: 95.254 kg

DRUGS (1)
  1. VENCLEXTA [Suspect]
     Active Substance: VENETOCLAX
     Indication: Acute myeloid leukaemia
     Dosage: FORM STRENGTH: 100 MG; 2 TABLETS IN A DAY
     Route: 048
     Dates: start: 202301

REACTIONS (2)
  - Arthritis [Recovering/Resolving]
  - Peripheral embolism [Unknown]

NARRATIVE: CASE EVENT DATE: 20240601
